FAERS Safety Report 11223621 (Version 1)
Quarter: 2015Q2

REPORT INFORMATION
  Report Type: Report from Study
  Country: CO (occurrence: CO)
  Receive Date: 20150629
  Receipt Date: 20150629
  Transmission Date: 20150821
  Serious: Yes (Hospitalization)
  Sender: FDA-Public Use
  Company Number: CO-ROCHE-1598917

PATIENT
  Age: 61 Year
  Sex: Male

DRUGS (3)
  1. MYCOPHENOLATE MOFETIL. [Suspect]
     Active Substance: MYCOPHENOLATE MOFETIL
     Indication: HEART TRANSPLANT
     Route: 048
     Dates: start: 20110119
  2. TACROLIMUS. [Concomitant]
     Active Substance: TACROLIMUS
  3. SIROLIMUS. [Concomitant]
     Active Substance: SIROLIMUS

REACTIONS (1)
  - Pulmonary mass [Recovering/Resolving]

NARRATIVE: CASE EVENT DATE: 201502
